FAERS Safety Report 9222032 (Version 1)
Quarter: 2013Q2

REPORT INFORMATION
  Report Type: Spontaneous
  Country: US (occurrence: None)
  Receive Date: 20130410
  Receipt Date: 20130410
  Transmission Date: 20140414
  Serious: Yes (Hospitalization)
  Sender: FDA-Public Use
  Company Number: None

PATIENT
  Age: 59 Year
  Sex: Male
  Weight: 78 kg

DRUGS (1)
  1. COUMADIN [Suspect]
     Indication: ATRIAL FIBRILLATION
     Dosage: 4MG  DAILY PO?RECENT
     Route: 048

REACTIONS (5)
  - International normalised ratio increased [None]
  - Chest pain [None]
  - Haematocrit decreased [None]
  - Duodenal ulcer [None]
  - Gastrointestinal haemorrhage [None]
